FAERS Safety Report 7420392-9 (Version None)
Quarter: 2011Q2

REPORT INFORMATION
  Report Type: 
  Country: None (occurrence: None)
  Receive Date: 20110418
  Receipt Date: 20110414
  Transmission Date: 20111010
  Serious: Yes (Death, Hospitalization, Other)
  Sender: FDA-Public Use
  Company Number: PHHY2010US20808

PATIENT
  Sex: Female

DRUGS (1)
  1. EXJADE [Suspect]
     Indication: THALASSAEMIA
     Dosage: 2000 MG, QD
     Route: 048

REACTIONS (15)
  - MYOCARDIAL INFARCTION [None]
  - URINE OUTPUT DECREASED [None]
  - FALL [None]
  - RESPIRATORY ACIDOSIS [None]
  - PULMONARY OEDEMA [None]
  - MALAISE [None]
  - FEMORAL NECK FRACTURE [None]
  - RESPIRATORY DISTRESS [None]
  - HYPOTENSION [None]
  - METABOLIC ACIDOSIS [None]
  - SKIN DISCOLOURATION [None]
  - ABDOMINAL DISTENSION [None]
  - BREATH SOUNDS ABNORMAL [None]
  - DEATH [None]
  - CONSTIPATION [None]
